FAERS Safety Report 18096880 (Version 1)
Quarter: 2020Q3

REPORT INFORMATION
  Report Type: Spontaneous
  Country: US (occurrence: US)
  Receive Date: 20200730
  Receipt Date: 20200730
  Transmission Date: 20201103
  Serious: Yes (Death)
  Sender: FDA-Public Use
  Company Number: None

PATIENT
  Age: 63 Year
  Sex: Male
  Weight: 72.7 kg

DRUGS (12)
  1. CONVALESCENT PLASMA [Concomitant]
     Active Substance: HUMAN PLASMA
     Dates: start: 20200723, end: 20200723
  2. INSULIN GLARGINE 10 UNITS SQ AT HS [Concomitant]
     Dates: start: 20200722, end: 20200726
  3. ZINC SULFATE 220 MG PO ONCE DAILY [Concomitant]
     Dates: start: 20200722, end: 20200726
  4. ASCORBIC ACID 1000 MG PO ONCE DAILY [Concomitant]
     Dates: start: 20200722, end: 20200728
  5. CEFTRIAXONE 1 GM IV ONCE DAILY [Concomitant]
     Dates: start: 20200721, end: 20200725
  6. FAMOTIDINE 20 MG IV Q12HR [Concomitant]
     Dates: start: 20200721, end: 20200728
  7. ENOXAPARIN 70 MG SQ Q12HRS [Concomitant]
     Dates: start: 20200721, end: 20200728
  8. SMZ/TMP IV Q6HR [Concomitant]
     Dates: start: 20200725, end: 20200728
  9. REMDESIVIR. [Suspect]
     Active Substance: REMDESIVIR
     Indication: COVID-19 PNEUMONIA
     Route: 042
     Dates: start: 20200721, end: 20200725
  10. DEXAMETHASONE 6 MG IV ONCE DAILY [Concomitant]
     Dates: start: 20200721, end: 20200728
  11. AZITHROMYCIN 500 MG IV ONCE DAILY [Concomitant]
     Dates: start: 20200721, end: 20200721
  12. INSULIN GLARGINE 15 UNITS SQ BID [Concomitant]
     Dates: start: 20200726, end: 20200728

REACTIONS (3)
  - Hypoxia [None]
  - Respiratory acidosis [None]
  - Cardiac arrest [None]

NARRATIVE: CASE EVENT DATE: 20200728
